FAERS Safety Report 8781814 (Version 6)
Quarter: 2012Q4

REPORT INFORMATION
  Report Type: 
  Country: US (occurrence: US)
  Receive Date: 20120913
  Receipt Date: 20121030
  Transmission Date: 20130627
  Serious: Yes (Hospitalization)
  Sender: FDA-Public Use
  Company Number: US-BIOGENIDEC-2012BI036642

PATIENT
  Age: 56 Year
  Sex: Female

DRUGS (1)
  1. TYSABRI [Suspect]
     Indication: MULTIPLE SCLEROSIS
     Route: 042
     Dates: start: 20120810

REACTIONS (5)
  - Convulsion [Recovered/Resolved]
  - Respiratory failure [Recovered/Resolved]
  - Vision blurred [Not Recovered/Not Resolved]
  - Sinusitis [Recovered/Resolved]
  - Infection [Not Recovered/Not Resolved]
